FAERS Safety Report 12947134 (Version 1)
Quarter: 2016Q4

REPORT INFORMATION
  Report Type: Spontaneous
  Country: US (occurrence: US)
  Receive Date: 20161116
  Receipt Date: 20161116
  Transmission Date: 20170207
  Serious: Yes (Other)
  Sender: FDA-Public Use
  Company Number: None

PATIENT
  Age: 60 Year
  Sex: Female
  Weight: 47.67 kg

DRUGS (9)
  1. HYOSCYAMINE 0.125 MG ORAL DIS TABS VIRTUS [Suspect]
     Active Substance: HYOSCYAMINE
     Indication: PAIN
     Dosage: 1 PILL TWICE DAILY 1 PILL TWICE DAILY MOUTH
     Route: 048
     Dates: start: 201608
  2. ENALAPRIL-HCTZ [Concomitant]
  3. AMBIEN CR [Concomitant]
     Active Substance: ZOLPIDEM TARTRATE
  4. ZANAFLEX [Concomitant]
     Active Substance: TIZANIDINE HYDROCHLORIDE
  5. NORCO [Concomitant]
     Active Substance: ACETAMINOPHEN\HYDROCODONE BITARTRATE
  6. EXCIDRIAN MIGRAINE [Concomitant]
  7. HYOSCYAMINE 0.125 MG ORAL DIS TABS VIRTUS [Suspect]
     Active Substance: HYOSCYAMINE
     Indication: GASTROINTESTINAL PAIN
     Dosage: 1 PILL TWICE DAILY 1 PILL TWICE DAILY MOUTH
     Route: 048
     Dates: start: 201608
  8. XANAX [Concomitant]
     Active Substance: ALPRAZOLAM
  9. ACIPHEX [Concomitant]
     Active Substance: RABEPRAZOLE SODIUM

REACTIONS (8)
  - Gait disturbance [None]
  - Dysarthria [None]
  - Dizziness [None]
  - Stomatitis [None]
  - Feeling abnormal [None]
  - Confusional state [None]
  - Oral pain [None]
  - Disturbance in attention [None]

NARRATIVE: CASE EVENT DATE: 20160805
